FAERS Safety Report 8998708 (Version 3)
Quarter: 2013Q1

REPORT INFORMATION
  Report Type: Spontaneous
  Country: IE (occurrence: IE)
  Receive Date: 20130103
  Receipt Date: 20130122
  Transmission Date: 20140127
  Serious: Yes (Other)
  Sender: FDA-Public Use
  Company Number: IE-SANOFI-AVENTIS-2012SA091829

PATIENT
  Age: 69 Year
  Sex: Male

DRUGS (4)
  1. CORDARONE [Suspect]
     Indication: ATRIAL FIBRILLATION
     Dosage: START DATE: MID 2009
     Route: 048
     Dates: start: 2009, end: 201211
  2. PLAVIX [Suspect]
     Indication: ATRIAL FIBRILLATION
     Route: 065
  3. PLAVIX [Suspect]
     Indication: ANTICOAGULANT THERAPY
     Route: 065
  4. CALCICHEW D3 [Concomitant]
     Indication: OSTEOPOROSIS
     Dosage: STARTED SEVERAL YEARS AGO

REACTIONS (3)
  - Myopathy [Not Recovered/Not Resolved]
  - Muscle atrophy [Not Recovered/Not Resolved]
  - Muscular weakness [Not Recovered/Not Resolved]
